FAERS Safety Report 6866756-3 (Version None)
Quarter: 2010Q2

REPORT INFORMATION
  Report Type: 
  Country: None (occurrence: None)
  Receive Date: 20100607
  Receipt Date: 20100301
  Transmission Date: 20101027
  Serious: Yes (Hospitalization)
  Sender: FDA-Public Use
  Company Number: US-001614

PATIENT
  Sex: Male

DRUGS (7)
  1. DESMOPRESSIN ACETATE [Suspect]
     Indication: POLYURIA
     Dosage: (0.1 TO 0.6 MG PER DAY AT BEDTIME ORAL)
     Route: 048
     Dates: start: 20070801, end: 20080101
  2. ENALAPRIL MALEATE [Concomitant]
  3. VALPROIC ACID [Concomitant]
  4. RISPERIDONE [Concomitant]
  5. CHLORPROMAZINE [Concomitant]
  6. CITALOPRAM HYDROBROMIDE [Concomitant]
  7. CLOZAPINE [Concomitant]

REACTIONS (1)
  - HYPONATRAEMIA [None]
